FAERS Safety Report 5427828-3 (Version None)
Quarter: 2007Q3

REPORT INFORMATION
  Report Type: 
  Country: None (occurrence: None)
  Receive Date: 20070828
  Receipt Date: 20070815
  Transmission Date: 20080115
  Serious: No
  Sender: FDA-Public Use
  Company Number: CA-ELI_LILLY_AND_COMPANY-CA200707000992

PATIENT
  Age: 76 Year
  Sex: Female
  Weight: 54.5 kg

DRUGS (11)
  1. FORTEO [Suspect]
     Indication: OSTEOPOROSIS
     Dosage: 20 UG, DAILY (1/D)
     Route: 058
     Dates: start: 20070514
  2. ISOPTIN [Concomitant]
     Dosage: UNK, UNK
  3. SYNTHROID [Concomitant]
     Dosage: 175 UG, UNK
     Route: 048
     Dates: end: 20070621
  4. SYNTHROID [Concomitant]
     Dosage: 150 UG, DAILY (1/D)
     Route: 048
  5. VITAMIN B-12 [Concomitant]
     Dosage: UNK, UNK
  6. PANTOLOC                           /01263201/ [Concomitant]
     Dosage: UNK, UNK
  7. ATIVAN [Concomitant]
     Dosage: UNK, UNK
  8. INHIBACE [Concomitant]
     Dosage: UNK, UNK
  9. CALCIUM W/VITAMIN D NOS [Concomitant]
     Dosage: UNK D/F, UNK
     Dates: end: 20070621
  10. VITAMIN D [Concomitant]
     Dosage: 1000 U, DAILY (1/D)
     Route: 048
  11. CALCIUM CARBONATE [Concomitant]
     Dosage: 500 MG, DAILY (1/D)
     Route: 048

REACTIONS (1)
  - SYSTOLIC HYPERTENSION [None]
